FAERS Safety Report 8863051 (Version 1)
Quarter: 2012Q4

REPORT INFORMATION
  Report Type: 
  Country: US (occurrence: US)
  Receive Date: 20121026
  Receipt Date: 20121026
  Transmission Date: 20130627
  Serious: Yes (Hospitalization, Other)
  Sender: FDA-Public Use
  Company Number: US-PERRIGO-12US009132

PATIENT
  Age: 16 Year
  Sex: Female

DRUGS (1)
  1. IBUPROFEN 200 MG 604 [Suspect]
     Indication: SUICIDE ATTEMPT
     Dosage: 60 to 70 g, single
     Route: 048

REACTIONS (7)
  - Intentional overdose [Recovered/Resolved]
  - Loss of consciousness [Recovered/Resolved]
  - Coma scale abnormal [Recovered/Resolved]
  - Hypotension [Recovered/Resolved]
  - Electrocardiogram QT prolonged [Recovered/Resolved]
  - Blood lactic acid increased [Recovered/Resolved]
  - Vomiting [Recovered/Resolved]
